FAERS Safety Report 10371767 (Version 1)
Quarter: 2014Q3

REPORT INFORMATION
  Report Type: Report from Study
  Country: PE (occurrence: PE)
  Receive Date: 20140808
  Receipt Date: 20140808
  Transmission Date: 20150326
  Serious: Yes (Death)
  Sender: FDA-Public Use
  Company Number: PE-BRISTOL-MYERS SQUIBB COMPANY-21283528

PATIENT
  Sex: Male

DRUGS (2)
  1. GLUCOPHAGE XR [Suspect]
     Active Substance: METFORMIN HYDROCHLORIDE
  2. CILOSTAL [Suspect]
     Active Substance: CILOSTAZOL

REACTIONS (2)
  - Cardiac arrest [Fatal]
  - Sudden cardiac death [None]

NARRATIVE: CASE EVENT DATE: 201407
